FAERS Safety Report 8275327-6 (Version None)
Quarter: 2012Q2

REPORT INFORMATION
  Report Type: 
  Country: None (occurrence: None)
  Receive Date: 20120411
  Receipt Date: 20120402
  Transmission Date: 20120825
  Serious: No
  Sender: FDA-Public Use
  Company Number: PHEH2011US011520

PATIENT
  Sex: Male

DRUGS (10)
  1. EXELON [Suspect]
     Dosage: 9.5 MG, UNK
     Route: 062
  2. EXELON [Suspect]
     Indication: TRANSIENT ISCHAEMIC ATTACK
     Dosage: 4.6 MG, DAILY
     Route: 062
  3. VITAMIN D [Concomitant]
  4. VITAMIN B COMPLEX CAP [Concomitant]
  5. ASPIRIN [Concomitant]
  6. FOLIC ACID [Concomitant]
  7. PLAVIX [Concomitant]
  8. ASPIRIN [Concomitant]
     Dosage: 325 MG, UNK
  9. ZANTAC [Concomitant]
     Dosage: 150 MG, UNK
  10. CRESTOR [Concomitant]

REACTIONS (2)
  - MEMORY IMPAIRMENT [None]
  - CONDITION AGGRAVATED [None]
